FAERS Safety Report 6646431-0 (Version None)
Quarter: 2010Q1

REPORT INFORMATION
  Report Type: 
  Country: None (occurrence: None)
  Receive Date: 20100318
  Receipt Date: 20100302
  Transmission Date: 20100710
  Serious: Yes (Other)
  Sender: FDA-Public Use
  Company Number: BVT-000494

PATIENT
  Sex: Male

DRUGS (1)
  1. KINERET [Suspect]

REACTIONS (2)
  - LYMPHOPROLIFERATIVE DISORDER [None]
  - OFF LABEL USE [None]
